FAERS Safety Report 21084205 (Version 1)
Quarter: 2022Q3

REPORT INFORMATION
  Report Type: Spontaneous
  Country: US (occurrence: US)
  Receive Date: 20220714
  Receipt Date: 20220714
  Transmission Date: 20221027
  Serious: No
  Sender: FDA-Public Use
  Company Number: US-JAZZ-2022-US-014271

PATIENT
  Age: 2 Year
  Sex: Female
  Weight: 30 kg

DRUGS (1)
  1. EPIDIOLEX [Suspect]
     Active Substance: CANNABIDIOL
     Indication: Epilepsy
     Dosage: 0.6 MILLILITER, BID
     Route: 048
     Dates: start: 20220428

REACTIONS (1)
  - Product dose omission issue [Unknown]

NARRATIVE: CASE EVENT DATE: 20220428
